FAERS Safety Report 9475620 (Version 25)
Quarter: 2016Q1

REPORT INFORMATION
  Report Type: Report from Study
  Country: CA (occurrence: CA)
  Receive Date: 20130826
  Receipt Date: 20160214
  Transmission Date: 20160526
  Serious: Yes (Hospitalization, Other)
  Sender: FDA-Public Use
  Company Number: PHHY2013CA080863

PATIENT
  Age: 51 Year
  Sex: Female

DRUGS (4)
  1. COTAZYM [Concomitant]
     Active Substance: PANCRELIPASE
     Indication: PRODUCT USED FOR UNKNOWN INDICATION
     Route: 065
  2. TEMOZOLOMIDE. [Concomitant]
     Active Substance: TEMOZOLOMIDE
     Indication: PRODUCT USED FOR UNKNOWN INDICATION
     Dosage: 140 MG, QD (ON DAYS 10-14)
     Route: 065
     Dates: end: 20140128
  3. SANDOSTATIN LAR DEPOT [Suspect]
     Active Substance: OCTREOTIDE ACETATE
     Indication: NEUROENDOCRINE TUMOUR
     Dosage: 30 MG (QMO) EVERY 4 WEEKS
     Route: 030
     Dates: start: 20130624
  4. CULTURELLE [Concomitant]
     Active Substance: LACTOBACILLUS RHAMNOSUS
     Indication: PRODUCT USED FOR UNKNOWN INDICATION
     Route: 065

REACTIONS (42)
  - Fear [Unknown]
  - Upper respiratory tract infection [Recovering/Resolving]
  - Syringe issue [Unknown]
  - Blood magnesium decreased [Unknown]
  - Neoplasm [Unknown]
  - Stress [Unknown]
  - Body temperature decreased [Unknown]
  - Faeces discoloured [Unknown]
  - Blood calcium decreased [Unknown]
  - Metastases to liver [Unknown]
  - Malaise [Recovered/Resolved]
  - Hypertension [Unknown]
  - Chills [Unknown]
  - Movement disorder [Unknown]
  - Asthenia [Unknown]
  - Malignant neoplasm progression [Unknown]
  - Breast pain [Unknown]
  - Gastrointestinal disorder [Unknown]
  - Flushing [Unknown]
  - Constipation [Unknown]
  - Abdominal discomfort [Unknown]
  - Abdominal pain upper [Unknown]
  - Facial asymmetry [Unknown]
  - Blood pressure diastolic increased [Unknown]
  - Hot flush [Unknown]
  - Back pain [Unknown]
  - Infection [Recovered/Resolved]
  - Underdose [Unknown]
  - Flatulence [Recovering/Resolving]
  - Muscle spasms [Unknown]
  - Productive cough [Unknown]
  - Frequent bowel movements [Unknown]
  - Abdominal distension [Recovering/Resolving]
  - Rales [Unknown]
  - Nasopharyngitis [Unknown]
  - Pyrexia [Recovered/Resolved]
  - Fatigue [Unknown]
  - Diarrhoea [Recovered/Resolved]
  - Dyspnoea [Unknown]
  - Pain [Unknown]
  - Abdominal pain [Recovered/Resolved]
  - Nausea [Unknown]

NARRATIVE: CASE EVENT DATE: 20130812
